FAERS Safety Report 7953235-5 (Version None)
Quarter: 2011Q4

REPORT INFORMATION
  Report Type: 
  Country: None (occurrence: None)
  Receive Date: 20111201
  Receipt Date: 20111130
  Transmission Date: 20120403
  Serious: Yes (Hospitalization)
  Sender: FDA-Public Use
  Company Number: US-MERCK-1106USA00667

PATIENT
  Age: 75 Year
  Sex: Female
  Weight: 79 kg

DRUGS (3)
  1. LIBRAX [Concomitant]
     Indication: IRRITABLE BOWEL SYNDROME
     Route: 065
     Dates: start: 20060101, end: 20110101
  2. ALENDRONATE SODIUM [Suspect]
     Indication: OSTEOPOROSIS
     Route: 048
     Dates: start: 20080301, end: 20100601
  3. FOSAMAX [Suspect]
     Indication: OSTEOPOROSIS
     Route: 048
     Dates: start: 20000118, end: 20110101

REACTIONS (10)
  - ARTHROPATHY [None]
  - LUMBAR RADICULOPATHY [None]
  - FEMUR FRACTURE [None]
  - ANXIETY [None]
  - IMPAIRED HEALING [None]
  - OSTEOARTHRITIS [None]
  - FALL [None]
  - CONTUSION [None]
  - BURSITIS [None]
  - ANKLE FRACTURE [None]
